FAERS Safety Report 7471397-3 (Version None)
Quarter: 2011Q2

REPORT INFORMATION
  Report Type: 
  Country: None (occurrence: None)
  Receive Date: 20110511
  Receipt Date: 20110503
  Transmission Date: 20111010
  Serious: Yes (Hospitalization)
  Sender: FDA-Public Use
  Company Number: US-PAR PHARMACEUTICAL, INC-2011SCPR002953

PATIENT

DRUGS (1)
  1. RANITIDINE [Suspect]
     Indication: ANTACID THERAPY
     Dosage: UNK, UNKNOWN
     Route: 065

REACTIONS (3)
  - GASTROINTESTINAL ULCER HAEMORRHAGE [None]
  - PRODUCT QUALITY ISSUE [None]
  - DRUG INEFFECTIVE [None]
